FAERS Safety Report 8796876 (Version 4)
Quarter: 2013Q2

REPORT INFORMATION
  Report Type: Report from Study
  Country: JP (occurrence: JP)
  Receive Date: 20120919
  Receipt Date: 20130524
  Transmission Date: 20140414
  Serious: Yes (Hospitalization, Other)
  Sender: FDA-Public Use
  Company Number: JP-VERTEX PHARMACEUTICAL INC.-AE-2012-010809

PATIENT
  Age: 66 Year
  Sex: Male

DRUGS (15)
  1. VX-950 (TELAPREVIR) [Suspect]
     Indication: CHRONIC HEPATITIS C
     Dosage: 1500 MG, QD
     Route: 048
     Dates: start: 20120316, end: 20120318
  2. VX-950 (TELAPREVIR) [Suspect]
     Dosage: 1500 MG, QD
     Route: 048
     Dates: start: 20120417, end: 20120806
  3. RIBAVIRIN [Suspect]
     Indication: CHRONIC HEPATITIS C
     Dosage: 600 MG, QD
     Route: 048
     Dates: start: 20120316, end: 20120318
  4. RIBAVIRIN [Suspect]
     Dosage: 600 MG, QD
     Route: 048
     Dates: start: 20120417, end: 20120806
  5. PEGINTERFERON ALFA-2B [Suspect]
     Indication: CHRONIC HEPATITIS C
     Dosage: 1.204 ?G/KG, QW
     Route: 058
     Dates: start: 20120316, end: 20120318
  6. PEGINTERFERON ALFA-2B [Suspect]
     Dosage: 1.204 ?G/KG, QW
     Route: 058
     Dates: start: 20120417, end: 20120617
  7. PEGINTERFERON ALFA-2B [Suspect]
     Dosage: 1.5 ?G/KG, QW
     Route: 058
     Dates: start: 20120618, end: 20120806
  8. PONTAL [Concomitant]
     Dosage: UNK, PRN
     Route: 048
     Dates: start: 20120507
  9. PREDNISOLONE [Concomitant]
     Dosage: 10 MG, QD
     Route: 048
     Dates: start: 20120417, end: 20120506
  10. PREDNISOLONE [Concomitant]
     Dosage: 5 MG, QD
     Route: 048
     Dates: start: 20120507, end: 20120514
  11. GASTER D [Concomitant]
     Dosage: 20 MG, QD
     Route: 048
     Dates: start: 20120417
  12. DIFLAL [Concomitant]
     Dosage: UNK, PRN
     Route: 061
     Dates: start: 20120417
  13. VOLTAREN [Concomitant]
     Dosage: 50 MG, QD
     Route: 054
     Dates: start: 20120316, end: 20120317
  14. LOXONIN [Concomitant]
     Dosage: 60 MG, QD/PRN
     Route: 048
     Dates: start: 20120611, end: 20120618
  15. SELBEX [Concomitant]
     Dosage: 0.5 MG, QD/PRN
     Route: 048
     Dates: start: 20120611, end: 20120618

REACTIONS (2)
  - Erythema [Recovered/Resolved]
  - Erythema [Recovered/Resolved]
